FAERS Safety Report 8959786 (Version 1)
Quarter: 2012Q4

REPORT INFORMATION
  Report Type: 
  Country: BR (occurrence: BR)
  Receive Date: 20121212
  Receipt Date: 20121212
  Transmission Date: 20130627
  Serious: Yes (Other)
  Sender: FDA-Public Use
  Company Number: BR-AMGEN-BRASP2012079646

PATIENT
  Age: 62 Year
  Sex: Female
  Weight: 94 kg

DRUGS (4)
  1. ENBREL [Suspect]
     Indication: RHEUMATOID ARTHRITIS
     Dosage: 50 mg, 1x/week
     Route: 058
     Dates: start: 201205, end: 201208
  2. TECNOMET                           /00113801/ [Concomitant]
     Indication: ARTHRITIS
     Dosage: UNK
     Dates: start: 2007
  3. CYMBALTA [Concomitant]
     Indication: FIBROMYALGIA
     Dosage: UNK
     Dates: start: 2011
  4. LYRICA [Concomitant]
     Indication: FIBROMYALGIA
     Dosage: UNK
     Dates: start: 2011

REACTIONS (1)
  - Cardiac disorder [Unknown]
